FAERS Safety Report 6460654-5 (Version None)
Quarter: 2009Q4

REPORT INFORMATION
  Report Type: 
  Country: None (occurrence: None)
  Receive Date: 20091130
  Receipt Date: 20091125
  Transmission Date: 20100525
  Serious: Yes (Death)
  Sender: FDA-Public Use
  Company Number: JP-ASTRAZENECA-2009SE13993

PATIENT
  Age: 16769 Day
  Sex: Male

DRUGS (39)
  1. MEROPEN [Suspect]
     Indication: MYOCARDIAL RUPTURE
     Route: 041
     Dates: start: 20090816, end: 20090824
  2. ALEVIATIN [Suspect]
     Indication: MYOCARDIAL RUPTURE
     Route: 042
     Dates: start: 20090815, end: 20090820
  3. PENTCILLIN [Suspect]
     Dates: start: 20090721, end: 20090810
  4. FIRSTCIN [Suspect]
     Route: 042
     Dates: start: 20090811, end: 20090814
  5. CEFAMEZIN ALPHA [Suspect]
     Dates: start: 20090725, end: 20090731
  6. DORMICUM [Concomitant]
     Dates: start: 20090805, end: 20090805
  7. DORMICUM [Concomitant]
     Dates: start: 20090808, end: 20090811
  8. DORMICUM [Concomitant]
     Dates: start: 20090813, end: 20090813
  9. LASIX [Concomitant]
     Dates: start: 20090726, end: 20090726
  10. LASIX [Concomitant]
     Dates: start: 20090728, end: 20090820
  11. LASIX [Concomitant]
     Dates: start: 20090914, end: 20090914
  12. BISOLVON [Concomitant]
     Dates: start: 20090729, end: 20090806
  13. BISOLVON [Concomitant]
     Dates: start: 20090808, end: 20090824
  14. BISOLVON [Concomitant]
     Dates: start: 20090829, end: 20090915
  15. URSO 250 [Concomitant]
     Route: 048
     Dates: start: 20090804, end: 20090806
  16. URSO 250 [Concomitant]
     Route: 048
     Dates: start: 20090813, end: 20090828
  17. NICARPINE [Concomitant]
     Dates: start: 20090804, end: 20090806
  18. NICARPINE [Concomitant]
     Dates: start: 20090808, end: 20090813
  19. NICARPINE [Concomitant]
     Dates: start: 20090815, end: 20090815
  20. NEO-MINOPHAGEN C [Concomitant]
     Dates: start: 20090805, end: 20090817
  21. LENDORMIN [Concomitant]
     Route: 048
     Dates: start: 20090812, end: 20090816
  22. LENDORMIN [Concomitant]
     Route: 048
     Dates: start: 20090820, end: 20090909
  23. CONIEL [Concomitant]
     Route: 048
     Dates: start: 20090813, end: 20090909
  24. COCARL [Concomitant]
     Route: 048
     Dates: start: 20090814, end: 20090814
  25. VOLTAREN [Concomitant]
     Route: 054
     Dates: start: 20090814, end: 20090814
  26. VOLTAREN [Concomitant]
     Route: 054
     Dates: start: 20090816, end: 20090816
  27. VOLTAREN [Concomitant]
     Route: 054
     Dates: start: 20090819, end: 20090819
  28. VOLTAREN [Concomitant]
     Route: 054
     Dates: start: 20090823, end: 20090825
  29. HORIZON [Concomitant]
     Dates: start: 20090815, end: 20090815
  30. ARTIST [Concomitant]
     Route: 048
     Dates: start: 20090818, end: 20090909
  31. ATARAX [Concomitant]
     Dates: start: 20090821, end: 20090821
  32. ATARAX [Concomitant]
     Dates: start: 20090827, end: 20090827
  33. GLUCONSAN K [Concomitant]
     Dosage: 30 MILLIEQUIVALENT/DAT
     Route: 048
     Dates: start: 20090822, end: 20090824
  34. TAKEPRON [Concomitant]
     Route: 048
     Dates: start: 20090824, end: 20090915
  35. CRAVIT [Concomitant]
     Route: 048
     Dates: start: 20090825, end: 20090904
  36. CIPROXAN [Concomitant]
     Dates: start: 20090828, end: 20090901
  37. CIPROXAN [Concomitant]
     Dates: start: 20090901, end: 20090914
  38. REMINARON [Concomitant]
     Dates: start: 20090831, end: 20090914
  39. VANCOMYCIN HYDROCHLORIDE [Concomitant]
     Dates: start: 20090901, end: 20090914

REACTIONS (1)
  - TOXIC EPIDERMAL NECROLYSIS [None]
